FAERS Safety Report 9239708 (Version 3)
Quarter: 2013Q4

REPORT INFORMATION
  Report Type: Spontaneous
  Country: US (occurrence: US)
  Receive Date: 20130418
  Receipt Date: 20131024
  Transmission Date: 20140711
  Serious: Yes (Death, Hospitalization, Other)
  Sender: FDA-Public Use
  Company Number: US-MERCK-1304USA008954

PATIENT
  Sex: Female
  Weight: 54.42 kg

DRUGS (1)
  1. JANUVIA [Suspect]
     Indication: TYPE 2 DIABETES MELLITUS
     Dosage: UNK
     Route: 048
     Dates: start: 200707, end: 201007

REACTIONS (16)
  - Pancreatic carcinoma metastatic [Fatal]
  - Metabolic disorder [Unknown]
  - Respiratory failure [Unknown]
  - Hepatic failure [Unknown]
  - Renal failure [Unknown]
  - Explorative laparotomy [Unknown]
  - Obstruction gastric [Unknown]
  - Choledochoenterostomy [Unknown]
  - Gastroenterostomy [Unknown]
  - Hyponatraemia [Unknown]
  - Dehydration [Unknown]
  - Generalised oedema [Unknown]
  - Cardiac failure congestive [Unknown]
  - Hyperlipidaemia [Unknown]
  - Gastrointestinal haemorrhage [Unknown]
  - Hypertension [Unknown]
